FAERS Safety Report 16249167 (Version 1)
Quarter: 2019Q2

REPORT INFORMATION
  Report Type: Spontaneous
  Country: IT (occurrence: IT)
  Receive Date: 20190429
  Receipt Date: 20190429
  Transmission Date: 20190711
  Serious: Yes (Other)
  Sender: FDA-Public Use
  Company Number: IT-APOTEX-2019AP012809

PATIENT
  Age: 56 Year
  Sex: Female

DRUGS (2)
  1. ANASTROZOLE. [Suspect]
     Active Substance: ANASTROZOLE
     Indication: BREAST CANCER
     Dosage: 1 MG, QD
     Route: 065
  2. TICLOPIDINE [Concomitant]
     Active Substance: TICLOPIDINE
     Indication: THROMBOPHLEBITIS
     Dosage: UNK
     Route: 065

REACTIONS (1)
  - Antiphospholipid syndrome [Recovered/Resolved]

NARRATIVE: CASE EVENT DATE: 201208
